FAERS Safety Report 25604138 (Version 1)
Quarter: 2025Q3

REPORT INFORMATION
  Report Type: Spontaneous
  Country: TR (occurrence: TR)
  Receive Date: 20250725
  Receipt Date: 20250725
  Transmission Date: 20251021
  Serious: Yes (Hospitalization)
  Sender: CHEPLAPHARM
  Company Number: TR-CHEPLA-2025008922

PATIENT
  Age: 39 Year
  Sex: Male

DRUGS (13)
  1. OLANZAPINE [Suspect]
     Active Substance: OLANZAPINE
     Indication: Bipolar I disorder
     Dosage: DAILY DOSE: 20 MILLIGRAM
  2. LITHIUM [Suspect]
     Active Substance: LITHIUM
     Indication: Bipolar I disorder
  3. QUETIAPINE [Suspect]
     Active Substance: QUETIAPINE
     Indication: Bipolar I disorder
     Dosage: DAILY DOSE: 400 MILLIGRAM
  4. QUETIAPINE [Suspect]
     Active Substance: QUETIAPINE
     Indication: Bipolar I disorder
     Dosage: DAILY DOSE: 600 MILLIGRAM
  5. QUETIAPINE [Suspect]
     Active Substance: QUETIAPINE
     Indication: Bipolar I disorder
     Dosage: ALL WITH GRADUAL DOSE INCREASES OVER THE LAST?THREE MONTHS.?DAILY DOSE: 900 MILLIGRAM
  6. QUETIAPINE [Suspect]
     Active Substance: QUETIAPINE
     Indication: Bipolar I disorder
     Dosage: DAILY DOSE: 300 MILLIGRAM
  7. VALPROIC ACID [Suspect]
     Active Substance: VALPROIC ACID
     Indication: Bipolar I disorder
  8. VALPROIC ACID [Suspect]
     Active Substance: VALPROIC ACID
     Indication: Bipolar I disorder
     Dosage: ALL WITH GRADUAL DOSE INCREASES OVER THE LAST?THREE MONTHS.?DAILY DOSE: 2500 MILLIGRAM
  9. ARIPIPRAZOLE [Suspect]
     Active Substance: ARIPIPRAZOLE
     Indication: Bipolar I disorder
     Dosage: DAILY DOSE: 20 MILLIGRAM
  10. ARIPIPRAZOLE [Suspect]
     Active Substance: ARIPIPRAZOLE
     Indication: Bipolar I disorder
     Dosage: ALL WITH GRADUAL DOSE INCREASES OVER THE LAST THREE MONTHS.?DAILY DOSE: 30 MILLIGRAM
  11. ZUCLOPENTHIXOL [Suspect]
     Active Substance: ZUCLOPENTHIXOL
     Indication: Bipolar I disorder
  12. LAMOTRIGINE [Suspect]
     Active Substance: LAMOTRIGINE
     Indication: Bipolar I disorder
     Dosage: ALL WITH GRADUAL DOSE INCREASES OVER THE LASTTHREE MONTHS.?DAILY DOSE: 100 MILLIGRAM
  13. DIAZEPAM [Suspect]
     Active Substance: DIAZEPAM
     Indication: Bipolar I disorder
     Dosage: ALL WITH GRADUAL DOSE INCREASES OVER THE LAST THREE MONTHS.?DAILY DOSE: 10 MILLIGRAM

REACTIONS (5)
  - Drug ineffective [Unknown]
  - Tremor [Unknown]
  - Salivary hypersecretion [Unknown]
  - Weight increased [Unknown]
  - Quality of life decreased [Unknown]
